FAERS Safety Report 16429952 (Version 1)
Quarter: 2019Q2

REPORT INFORMATION
  Report Type: Spontaneous
  Country: US (occurrence: US)
  Receive Date: 20190614
  Receipt Date: 20190614
  Transmission Date: 20190711
  Serious: Yes (Death, Other)
  Sender: FDA-Public Use
  Company Number: US-ACTELION-A-CH2019-191513

PATIENT
  Sex: Male

DRUGS (3)
  1. BOSENTAN. [Suspect]
     Active Substance: BOSENTAN
     Indication: PULMONARY HYPERTENSION
     Route: 048
  2. SILDENAFIL. [Concomitant]
     Active Substance: SILDENAFIL
     Indication: PULMONARY HYPERTENSION
  3. MILRINONE [Concomitant]
     Active Substance: MILRINONE
     Indication: PULMONARY HYPERTENSION

REACTIONS (7)
  - Cardio-respiratory distress [Unknown]
  - Urine output decreased [Unknown]
  - Laboratory test abnormal [Recovering/Resolving]
  - Pulmonary hypoplasia [Fatal]
  - Free haemoglobin present [Recovering/Resolving]
  - Acute kidney injury [Unknown]
  - Plasmapheresis [Unknown]
